FAERS Safety Report 7393131-8 (Version None)
Quarter: 2011Q2

REPORT INFORMATION
  Report Type: 
  Country: None (occurrence: None)
  Receive Date: 20110404
  Receipt Date: 20110324
  Transmission Date: 20111010
  Serious: Yes (Hospitalization, Other)
  Sender: FDA-Public Use
  Company Number: US-AMGEN-USASP2011007687

PATIENT
  Age: 55 Year
  Sex: Female

DRUGS (1)
  1. ENBREL [Suspect]
     Indication: ANKYLOSING SPONDYLITIS
     Dosage: 50 MG, QWK
     Dates: start: 20050101

REACTIONS (8)
  - FOOT OPERATION [None]
  - KERATOTOMY [None]
  - INCISION SITE COMPLICATION [None]
  - VISUAL ACUITY REDUCED [None]
  - HEADACHE [None]
  - SJOGREN'S SYNDROME [None]
  - VOMITING [None]
  - ARRHYTHMIA [None]
